FAERS Safety Report 4911139-6 (Version None)
Quarter: 2006Q1

REPORT INFORMATION
  Report Type: 
  Country: None (occurrence: None)
  Receive Date: 20060209
  Receipt Date: 20060127
  Transmission Date: 20060701
  Serious: Yes (Other)
  Sender: FDA-Public Use
  Company Number: 13349

PATIENT
  Age: 16 Year
  Sex: Male

DRUGS (4)
  1. METHOTREXATE [Suspect]
     Indication: PSORIATIC ARTHROPATHY
     Dosage: 20 MG WEEKLY ST
     Dates: start: 20041229, end: 20051205
  2. METHOTREXATE [Suspect]
     Indication: PSORIATIC ARTHROPATHY
     Dosage: 22.5 MG WEEKLY PO
     Route: 048
     Dates: start: 20060104
  3. ETANERCEPT [Concomitant]
  4. UNSPECIFIED ANABOLIC STEROID [Concomitant]

REACTIONS (7)
  - CONDITION AGGRAVATED [None]
  - JUVENILE ARTHRITIS [None]
  - NAUSEA [None]
  - NEUTROPHIL COUNT INCREASED [None]
  - SKIN DISORDER [None]
  - VOMITING [None]
  - WHITE BLOOD CELL COUNT INCREASED [None]
